FAERS Safety Report 10530861 (Version 1)
Quarter: 2014Q4

REPORT INFORMATION
  Report Type: Spontaneous
  Country: US (occurrence: None)
  Receive Date: 20141020
  Receipt Date: 20141020
  Transmission Date: 20150528
  Serious: Yes (Hospitalization)
  Sender: FDA-Public Use
  Company Number: None

PATIENT
  Age: 92 Year
  Sex: Male
  Weight: 44 kg

DRUGS (2)
  1. ASPIRIN. [Suspect]
     Active Substance: ASPIRIN
     Indication: ATRIAL FIBRILLATION
     Route: 048
     Dates: start: 20131127, end: 20140913
  2. ASPIRIN. [Suspect]
     Active Substance: ASPIRIN
     Indication: CORONARY ARTERY DISEASE
     Route: 048
     Dates: start: 20131127, end: 20140913

REACTIONS (13)
  - Contusion [None]
  - Fatigue [None]
  - Dizziness [None]
  - Refusal of treatment by patient [None]
  - Helicobacter gastritis [None]
  - Upper gastrointestinal haemorrhage [None]
  - Melaena [None]
  - Abdominal pain lower [None]
  - Fall [None]
  - Heart rate increased [None]
  - Blood urea increased [None]
  - International normalised ratio decreased [None]
  - Hypotension [None]

NARRATIVE: CASE EVENT DATE: 20140912
